FAERS Safety Report 18696765 (Version 1)
Quarter: 2021Q1

REPORT INFORMATION
  Report Type: Other
  Country: US (occurrence: US)
  Receive Date: 20210104
  Receipt Date: 20210104
  Transmission Date: 20210419
  Serious: No
  Sender: FDA-Public Use
  Company Number: US-ROCHE-2619750

PATIENT
  Age: 88 Year
  Sex: Male

DRUGS (3)
  1. ACTILYSE [Suspect]
     Active Substance: ALTEPLASE
     Indication: ISCHAEMIC STROKE
     Dosage: 1 IN ONCE
     Route: 042
  2. LEVETIRACETAM. [Suspect]
     Active Substance: LEVETIRACETAM
     Indication: SEIZURE PROPHYLAXIS
     Route: 042
  3. NICARDIPINE [Suspect]
     Active Substance: NICARDIPINE
     Indication: SEIZURE PROPHYLAXIS
     Route: 042

REACTIONS (4)
  - Injury [Recovered/Resolved]
  - Skin laceration [Recovered/Resolved]
  - Haematoma [Recovered/Resolved]
  - Blister [Recovered/Resolved]
